FAERS Safety Report 5849504-5 (Version None)
Quarter: 2008Q3

REPORT INFORMATION
  Report Type: 
  Country: None (occurrence: None)
  Receive Date: 20080819
  Receipt Date: 20080806
  Transmission Date: 20090109
  Serious: Yes (Death, Hospitalization, Congenital Anomaly)
  Sender: FDA-Public Use
  Company Number: A0699516A

PATIENT
  Sex: Female

DRUGS (5)
  1. PAXIL [Suspect]
     Indication: DEPRESSION
     Dosage: 20MG PER DAY
     Dates: start: 19970701, end: 19970901
  2. VITAMIN AND MINERAL PRENATAL SUPPLEMENT W/ FOLIC ACID CAP [Concomitant]
     Dates: start: 19971001, end: 19980801
  3. ZOLOFT [Concomitant]
  4. SERZONE [Concomitant]
  5. PROZAC [Concomitant]
     Dates: start: 19971001, end: 19980701

REACTIONS (37)
  - ARRHYTHMIA [None]
  - BRADYCARDIA [None]
  - CARDIAC FAILURE [None]
  - CAROTID ARTERY THROMBOSIS [None]
  - CEREBRAL HAEMORRHAGE [None]
  - COAGULOPATHY [None]
  - CONGENITAL DIAPHRAGMATIC HERNIA [None]
  - DEXTROCARDIA [None]
  - DIAPHRAGMATIC DISORDER [None]
  - DRUG EXPOSURE DURING PREGNANCY [None]
  - GENERALISED OEDEMA [None]
  - HAEMORRHAGE [None]
  - HAEMOTHORAX [None]
  - HYDROTHORAX [None]
  - INTESTINAL MALROTATION [None]
  - LUNG INJURY [None]
  - MULTIPLE CONGENITAL ABNORMALITIES [None]
  - PARTIAL SEIZURES [None]
  - PATENT DUCTUS ARTERIOSUS [None]
  - PELVIC VENOUS THROMBOSIS [None]
  - PERITONITIS [None]
  - PERSISTENT FOETAL CIRCULATION [None]
  - PLEURISY [None]
  - PNEUMONITIS [None]
  - PNEUMOTHORAX [None]
  - PULMONARY EMBOLISM [None]
  - PULMONARY HAEMORRHAGE [None]
  - PULMONARY HYPOPLASIA [None]
  - PULMONARY OEDEMA [None]
  - RESPIRATORY FAILURE [None]
  - STAPHYLOCOCCAL SEPSIS [None]
  - SUBARACHNOID HAEMORRHAGE [None]
  - SUBDURAL HAEMATOMA [None]
  - TRICUSPID VALVE INCOMPETENCE [None]
  - VASODILATATION [None]
  - VENA CAVA THROMBOSIS [None]
  - VENTRICULAR HYPOPLASIA [None]
